FAERS Safety Report 22390802 (Version 1)
Quarter: 2023Q2

REPORT INFORMATION
  Report Type: Report from Study
  Country: US (occurrence: US)
  Receive Date: 20230531
  Receipt Date: 20230531
  Transmission Date: 20230721
  Serious: Yes (Other)
  Sender: FDA-Public Use
  Company Number: US-ABBVIE-5186084

PATIENT
  Sex: Female

DRUGS (1)
  1. SKYRIZI [Suspect]
     Active Substance: RISANKIZUMAB-RZAA
     Indication: Product used for unknown indication
     Dosage: CARTRIDGE: 360MG/2.4ML?FORM STRENGTH: 360 MILLIGRAM?FREQUENCY TEXT: OTHER
     Route: 058

REACTIONS (6)
  - Gastrointestinal haemorrhage [Unknown]
  - Haematochezia [Unknown]
  - White blood cell count decreased [Unknown]
  - Stomatitis [Unknown]
  - Anaemia [Unknown]
  - Red blood cell count decreased [Unknown]
